FAERS Safety Report 11065854 (Version 2)
Quarter: 2015Q2

REPORT INFORMATION
  Report Type: Spontaneous
  Country: US (occurrence: US)
  Receive Date: 20150425
  Receipt Date: 20150525
  Transmission Date: 20150821
  Serious: Yes (Other)
  Sender: FDA-Public Use
  Company Number: US-JNJFOC-20101007440

PATIENT
  Age: 35 Year
  Sex: Male

DRUGS (3)
  1. METHYLPREDNISOLONE. [Suspect]
     Active Substance: METHYLPREDNISOLONE
     Indication: OROPHARYNGEAL PAIN
     Route: 065
  2. LEVAQUIN [Suspect]
     Active Substance: LEVOFLOXACIN
     Indication: PHARYNGITIS
     Route: 048
     Dates: start: 20090408, end: 20090415
  3. LEVAQUIN [Suspect]
     Active Substance: LEVOFLOXACIN
     Indication: PHARYNGITIS
     Route: 048
     Dates: start: 20090408, end: 20090415

REACTIONS (4)
  - Tendon rupture [Unknown]
  - Tendon rupture [Unknown]
  - Drug effect decreased [Unknown]
  - Tenosynovitis [Unknown]

NARRATIVE: CASE EVENT DATE: 200908
